FAERS Safety Report 6333069-8 (Version None)
Quarter: 2009Q3

REPORT INFORMATION
  Report Type: 
  Country: None (occurrence: None)
  Receive Date: 20090828
  Receipt Date: 20090825
  Transmission Date: 20100115
  Serious: Yes (Death, Hospitalization)
  Sender: FDA-Public Use
  Company Number: US-ASTRAZENECA-2009UW20350

PATIENT
  Age: 16275 Day
  Sex: Female

DRUGS (19)
  1. SEROQUEL [Suspect]
     Indication: DEPRESSION
     Route: 048
     Dates: start: 20070223
  2. TIZANIDINE HCL [Concomitant]
     Dates: start: 20070420
  3. METHADONE [Concomitant]
     Dates: start: 20070507
  4. LYRICA [Concomitant]
  5. PRAVASTATIN [Concomitant]
     Dates: start: 20070510
  6. LORATADINE [Concomitant]
     Dates: start: 20070513
  7. CLONAZEPAM [Concomitant]
     Dates: start: 20070519
  8. FLUOXETINE [Concomitant]
     Dates: start: 20070519
  9. TOPAMAX [Concomitant]
     Dates: start: 20070519
  10. TEMAZEPAM [Concomitant]
     Dates: start: 20070712
  11. PROTONIX [Concomitant]
     Dates: start: 20070711
  12. DEXAMETH [Concomitant]
     Dates: start: 20070716
  13. MIRAPEX [Concomitant]
     Dates: start: 20070717
  14. NITROGLYCERIN [Concomitant]
     Route: 060
     Dates: start: 20070829
  15. PREMARIN [Concomitant]
     Dates: start: 20070829
  16. ZETIA [Concomitant]
     Dates: start: 20070829
  17. HYDROCHLOROTHIAZIDE [Concomitant]
     Dates: start: 20071003
  18. AMITRIPTYLINE [Concomitant]
  19. GABAPENTIN [Concomitant]
     Dates: start: 20080527

REACTIONS (5)
  - CARDIOMYOPATHY [None]
  - DIABETIC KETOACIDOSIS [None]
  - HEPATIC STEATOSIS [None]
  - HYPERGLYCAEMIA [None]
  - PULMONARY CONGESTION [None]
